FAERS Safety Report 6362220-9 (Version None)
Quarter: 2009Q3

REPORT INFORMATION
  Report Type: 
  Country: None (occurrence: None)
  Receive Date: 20090918
  Receipt Date: 20090629
  Transmission Date: 20100115
  Serious: No
  Sender: FDA-Public Use
  Company Number: US-ABBOTT-09P-163-0583033-00

PATIENT
  Sex: Male
  Weight: 88.53 kg

DRUGS (7)
  1. HUMIRA [Suspect]
     Indication: PSORIATIC ARTHROPATHY
     Dates: start: 20071001, end: 20080301
  2. HUMIRA [Suspect]
     Indication: PSORIASIS
     Dates: start: 20090401
  3. ZOCOR [Concomitant]
     Indication: BLOOD CHOLESTEROL INCREASED
  4. DIOVAN [Concomitant]
     Indication: HYPERTENSION
  5. PREDNISONE [Concomitant]
     Indication: PSORIATIC ARTHROPATHY
     Dates: start: 20090101
  6. IBUPROFEN [Concomitant]
     Indication: PSORIATIC ARTHROPATHY
  7. OXYCODONE [Concomitant]
     Indication: PSORIATIC ARTHROPATHY

REACTIONS (4)
  - DRUG INEFFECTIVE [None]
  - GENERAL PHYSICAL HEALTH DETERIORATION [None]
  - HEADACHE [None]
  - PAIN [None]
